FAERS Safety Report 12716279 (Version 2)
Quarter: 2016Q3

REPORT INFORMATION
  Report Type: Spontaneous
  Country: AU (occurrence: AU)
  Receive Date: 20160906
  Receipt Date: 20160919
  Transmission Date: 20161109
  Serious: Yes (Hospitalization)
  Sender: FDA-Public Use
  Company Number: PHHY2016AU120914

PATIENT
  Age: 53 Year
  Sex: Male

DRUGS (2)
  1. NUROFEN//IBUPROFEN [Suspect]
     Active Substance: IBUPROFEN
     Indication: PAIN
     Dosage: UNK 2 TO 6 TIMES
     Route: 048
  2. GILENYA [Suspect]
     Active Substance: FINGOLIMOD HYDROCHLORIDE
     Indication: RELAPSING-REMITTING MULTIPLE SCLEROSIS
     Dosage: UNK
     Route: 048
     Dates: start: 20110908, end: 20160814

REACTIONS (4)
  - Cholangitis [Unknown]
  - Blood bilirubin increased [Unknown]
  - Drug-induced liver injury [Not Recovered/Not Resolved]
  - Bile duct stone [Not Recovered/Not Resolved]

NARRATIVE: CASE EVENT DATE: 20160813
